FAERS Safety Report 9916094 (Version 1)
Quarter: 2014Q1

REPORT INFORMATION
  Report Type: Spontaneous
  Country: US (occurrence: None)
  Receive Date: 20140219
  Receipt Date: 20140219
  Transmission Date: 20141002
  Serious: Yes (Death)
  Sender: FDA-Public Use
  Company Number: 2014P1001145

PATIENT
  Sex: Female

DRUGS (3)
  1. FENTANYL [Suspect]
     Indication: SCIATICA
     Dosage: 50 UG; QH; TDER
     Route: 062
  2. UNSPECIFIED OPIOID [Concomitant]
  3. OVER THE COUNTER PAIN RELIEVERS [Concomitant]

REACTIONS (2)
  - Wrong technique in drug usage process [None]
  - Inappropriate schedule of drug administration [None]
